FAERS Safety Report 5064153-7 (Version None)
Quarter: 2006Q3

REPORT INFORMATION
  Report Type: 
  Country: None (occurrence: None)
  Receive Date: 20060728
  Receipt Date: 20051026
  Transmission Date: 20061208
  Serious: No
  Sender: FDA-Public Use
  Company Number: US-GLAXOSMITHKLINE-A0579760A

PATIENT
  Age: 6 Month
  Sex: Male

DRUGS (2)
  1. ZANTAC [Suspect]
     Dosage: .5ML TWICE PER DAY
     Route: 048
     Dates: start: 20050609
  2. UNKNOWN MEDICATION [Suspect]
     Indication: DRUG USE FOR UNKNOWN INDICATION
     Route: 065

REACTIONS (4)
  - EXFOLIATIVE RASH [None]
  - IRRITABILITY [None]
  - MEDICATION ERROR [None]
  - RASH ERYTHEMATOUS [None]
